FAERS Safety Report 5833221-1 (Version None)
Quarter: 2008Q3

REPORT INFORMATION
  Report Type: 
  Country: None (occurrence: None)
  Receive Date: 20080805
  Receipt Date: 20080804
  Transmission Date: 20090109
  Serious: Yes (Other)
  Sender: FDA-Public Use
  Company Number: RU-BRISTOL-MYERS SQUIBB COMPANY-14262398

PATIENT
  Age: 41 Year
  Sex: Male

DRUGS (1)
  1. ENTECAVIR [Suspect]
     Indication: HEPATIC CIRRHOSIS
     Dosage: TREATMENT WAS INTERRUPTED FOR 2 WEEKS
     Route: 048
     Dates: start: 20071001

REACTIONS (6)
  - ALOPECIA [None]
  - ASTHENIA [None]
  - DYSPHAGIA [None]
  - GASTRIC CANCER [None]
  - LIPASE INCREASED [None]
  - VOMITING [None]
